FAERS Safety Report 19769256 (Version 1)
Quarter: 2021Q3

REPORT INFORMATION
  Report Type: Spontaneous
  Country: US (occurrence: US)
  Receive Date: 20210827
  Receipt Date: 20210827
  Transmission Date: 20211014
  Serious: No
  Sender: FDA-Public Use
  Company Number: None

PATIENT
  Sex: Female

DRUGS (1)
  1. C?TACROLIMUS SUSP 1MG/ML NOVAPLUS/ASTELLAS [Suspect]
     Active Substance: TACROLIMUS
     Indication: NEPHROTIC SYNDROME
     Route: 048
     Dates: start: 202103

REACTIONS (4)
  - Diarrhoea [None]
  - Urticaria [None]
  - Hypersensitivity [None]
  - Dyspnoea [None]
